FAERS Safety Report 7264752-8 (Version None)
Quarter: 2011Q1

REPORT INFORMATION
  Report Type: 
  Country: None (occurrence: None)
  Receive Date: 20110131
  Receipt Date: 20110121
  Transmission Date: 20110831
  Serious: Yes (Hospitalization, Other)
  Sender: FDA-Public Use
  Company Number: US-US-EMD SERONO, INC.-232497K08USA

PATIENT
  Sex: Female

DRUGS (9)
  1. REBIF [Suspect]
     Indication: MULTIPLE SCLEROSIS
     Route: 058
     Dates: start: 20080325, end: 20080801
  2. REBIF [Suspect]
     Route: 058
     Dates: start: 20100730, end: 20101101
  3. MORPHINE [Concomitant]
  4. ENALAPRIL MALEATE [Concomitant]
     Indication: HYPERTENSION
  5. BACLOFEN [Concomitant]
     Indication: MULTIPLE SCLEROSIS
  6. TIZANIDINE [Concomitant]
     Indication: MULTIPLE SCLEROSIS RELAPSE
  7. ALLEGRA [Concomitant]
     Indication: HYPERSENSITIVITY
  8. GABAPENTIN [Concomitant]
     Indication: MULTIPLE SCLEROSIS
  9. NORCO [Concomitant]

REACTIONS (7)
  - RENAL DISORDER [None]
  - SPINAL FRACTURE [None]
  - CENTRAL NERVOUS SYSTEM INFECTION [None]
  - FALL [None]
  - NERVE COMPRESSION [None]
  - BACK PAIN [None]
  - DRUG HYPERSENSITIVITY [None]
